FAERS Safety Report 19890242 (Version 1)
Quarter: 2021Q3

REPORT INFORMATION
  Report Type: Spontaneous
  Country: US (occurrence: US)
  Receive Date: 20210928
  Receipt Date: 20210928
  Transmission Date: 20211014
  Serious: Yes (Other)
  Sender: FDA-Public Use
  Company Number: US-PFIZER INC-202101259385

PATIENT
  Age: 76 Year
  Sex: Female

DRUGS (1)
  1. IBRANCE [Suspect]
     Active Substance: PALBOCICLIB
     Indication: HORMONE RECEPTOR POSITIVE HER2 NEGATIVE BREAST CANCER
     Dosage: 100 MG, CYCLIC (TAKE 1 TABLET (100MG) BY MOUTH DAILY. TAKE FOR 21 DAYS FOLLOWED BY 7 DAYS OFF.)
     Route: 048

REACTIONS (1)
  - Neutropenia [Unknown]
